FAERS Safety Report 16827177 (Version 1)
Quarter: 2019Q3

REPORT INFORMATION
  Report Type: Spontaneous
  Country: JP (occurrence: JP)
  Receive Date: 20190919
  Receipt Date: 20190919
  Transmission Date: 20191005
  Serious: Yes (Other)
  Sender: FDA-Public Use
  Company Number: JP-BAYER-2019-142677

PATIENT
  Age: 75 Year
  Sex: Male

DRUGS (1)
  1. XOFIGO [Suspect]
     Active Substance: RADIUM RA-223 DICHLORIDE
     Indication: HORMONE-REFRACTORY PROSTATE CANCER
     Dosage: UNK
     Route: 042
     Dates: start: 20190208, end: 20190510

REACTIONS (6)
  - Bone density decreased [None]
  - Hormone-refractory prostate cancer [None]
  - Fall [None]
  - Metastases to bone [None]
  - Bone pain [Not Recovered/Not Resolved]
  - Traumatic fracture [Not Recovered/Not Resolved]

NARRATIVE: CASE EVENT DATE: 20190603
